FAERS Safety Report 7605475-2 (Version None)
Quarter: 2011Q3

REPORT INFORMATION
  Report Type: 
  Country: None (occurrence: None)
  Receive Date: 20110713
  Receipt Date: 20110706
  Transmission Date: 20111222
  Serious: Yes (Other)
  Sender: FDA-Public Use
  Company Number: US-PFIZER INC-2011153183

PATIENT
  Age: 53 Year
  Sex: Female

DRUGS (1)
  1. VIBRAMYCIN [Suspect]

REACTIONS (1)
  - HENOCH-SCHONLEIN PURPURA [None]
